FAERS Safety Report 24803526 (Version 1)
Quarter: 2025Q1

REPORT INFORMATION
  Report Type: Spontaneous
  Country: BE (occurrence: BE)
  Receive Date: 20250103
  Receipt Date: 20250103
  Transmission Date: 20250408
  Serious: Yes (Hospitalization)
  Sender: BRISTOL-MYERS SQUIBB COMPANY
  Company Number: None

PATIENT
  Age: 74 Year
  Sex: Male
  Weight: 70 kg

DRUGS (2)
  1. YERVOY [Suspect]
     Active Substance: IPILIMUMAB
     Indication: Product used for unknown indication
     Dates: start: 20241024
  2. OPDIVO [Suspect]
     Active Substance: NIVOLUMAB
     Indication: Epithelioid mesothelioma
     Route: 042
     Dates: start: 20241024, end: 20241114

REACTIONS (17)
  - Muscular weakness [Recovering/Resolving]
  - Fatigue [Recovering/Resolving]
  - Exercise tolerance decreased [Recovering/Resolving]
  - Slow speech [Recovering/Resolving]
  - Dyspnoea exertional [Recovering/Resolving]
  - Poor quality sleep [Recovering/Resolving]
  - Productive cough [Recovering/Resolving]
  - Dyspnoea [Recovering/Resolving]
  - Dry mouth [Recovering/Resolving]
  - Decreased appetite [Recovering/Resolving]
  - Nightmare [Recovering/Resolving]
  - Anxiety [Recovering/Resolving]
  - Liver function test abnormal [Recovering/Resolving]
  - Dyspraxia [Recovering/Resolving]
  - Dysphagia [Recovering/Resolving]
  - Reduced facial expression [Recovering/Resolving]
  - Dysarthria [Recovering/Resolving]

NARRATIVE: CASE EVENT DATE: 20241114
